FAERS Safety Report 12076437 (Version 1)
Quarter: 2016Q1

REPORT INFORMATION
  Report Type: Spontaneous
  Country: US (occurrence: US)
  Receive Date: 20160215
  Receipt Date: 20160215
  Transmission Date: 20160526
  Serious: No
  Sender: FDA-Public Use
  Company Number: US-ASTRAZENECA-2016SE12448

PATIENT
  Age: 24441 Day
  Sex: Female
  Weight: 70.3 kg

DRUGS (5)
  1. PULMICORT FLEXHALER [Suspect]
     Active Substance: BUDESONIDE
     Indication: BRONCHITIS
     Dosage: 180 MCG 120 DOSE INHALER, TWO TIMES A DAY
     Route: 055
     Dates: start: 20160202
  2. COUGH SYRUP [Concomitant]
     Active Substance: DEXTROMETHORPHAN HYDROBROMIDE\GUAIFENESIN
     Indication: BRONCHITIS
     Dosage: EVERY 4 - 6 HOURS
     Route: 048
     Dates: start: 20160104
  3. PREDNISONE. [Concomitant]
     Active Substance: PREDNISONE
     Indication: BRONCHITIS
     Route: 048
     Dates: start: 20160104
  4. PULMICORT FLEXHALER [Suspect]
     Active Substance: BUDESONIDE
     Indication: INFLAMMATION
     Dosage: 180 MCG 120 DOSE INHALER, TWO TIMES A DAY
     Route: 055
     Dates: start: 20160202
  5. STEROID SHOT [Concomitant]
     Active Substance: UNSPECIFIED INGREDIENT
     Indication: BRONCHITIS
     Dosage: ONCE/SINGLE ADMINISTRATION
     Route: 065
     Dates: start: 20160104, end: 20160104

REACTIONS (3)
  - Fatigue [Unknown]
  - Drug dose omission [Unknown]
  - Product use issue [Unknown]

NARRATIVE: CASE EVENT DATE: 20160202
